FAERS Safety Report 13085636 (Version 2)
Quarter: 2019Q2

REPORT INFORMATION
  Report Type: Spontaneous
  Country: JP (occurrence: JP)
  Receive Date: 20170104
  Receipt Date: 20190411
  Transmission Date: 20190711
  Serious: Yes (Life-Threatening, Hospitalization)
  Sender: FDA-Public Use
  Company Number: JP-ELI_LILLY_AND_COMPANY-JP201608009627

PATIENT
  Age: 67 Year
  Sex: Male
  Weight: 55 kg

DRUGS (5)
  1. FAMOTIDINE. [Concomitant]
     Active Substance: FAMOTIDINE
     Indication: ALLERGY PROPHYLAXIS
     Dosage: 20 MG, UNKNOWN
     Route: 041
     Dates: start: 20160518, end: 20160713
  2. CYRAMZA [Suspect]
     Active Substance: RAMUCIRUMAB
     Indication: GASTRIC CANCER STAGE III
     Dosage: 440 MG, EVERY 2 WEEKS
     Route: 041
     Dates: start: 20160518, end: 20160713
  3. PACLITAXEL. [Concomitant]
     Active Substance: PACLITAXEL
     Indication: GASTRIC CANCER STAGE III
     Dosage: 100 MG, EVERY 2 WEEKS
     Route: 041
     Dates: start: 20160518, end: 20160713
  4. POLARAMINE [Concomitant]
     Active Substance: DEXCHLORPHENIRAMINE MALEATE
     Indication: ALLERGY PROPHYLAXIS
     Dosage: 5 MG, UNKNOWN
     Route: 041
     Dates: start: 20160518, end: 20160713
  5. GRANISETRON [Concomitant]
     Active Substance: GRANISETRON
     Indication: PROPHYLAXIS OF NAUSEA AND VOMITING
     Dosage: 3 MG, UNKNOWN
     Route: 041
     Dates: start: 20160518, end: 20160713

REACTIONS (4)
  - Road traffic accident [Unknown]
  - Hypertension [Unknown]
  - Haemorrhage intracranial [Not Recovered/Not Resolved]
  - Protein urine present [Unknown]

NARRATIVE: CASE EVENT DATE: 20160610
